FAERS Safety Report 20660203 (Version 1)
Quarter: 2022Q1

REPORT INFORMATION
  Report Type: Spontaneous
  Country: BR (occurrence: BR)
  Receive Date: 20220331
  Receipt Date: 20220331
  Transmission Date: 20220423
  Serious: Yes (Hospitalization, Other)
  Sender: FDA-Public Use
  Company Number: BR-PFIZER INC-202200474405

PATIENT
  Age: 22 Year
  Sex: Female

DRUGS (1)
  1. DEPO-PROVERA [Suspect]
     Active Substance: MEDROXYPROGESTERONE ACETATE
     Indication: Contraception
     Dosage: UNK
     Dates: start: 201812, end: 202004

REACTIONS (18)
  - Hypotension [Unknown]
  - Ovarian haemorrhage [Unknown]
  - Ovarian cyst [Unknown]
  - Ovarian enlargement [Unknown]
  - Malaise [Unknown]
  - Dizziness [Unknown]
  - Swelling [Unknown]
  - Headache [Unknown]
  - Menstruation irregular [Unknown]
  - Amenorrhoea [Unknown]
  - Weight increased [Unknown]
  - Glucose tolerance impaired [Unknown]
  - Limb mass [Unknown]
  - Mood swings [Unknown]
  - Anxiety [Unknown]
  - Depression [Unknown]
  - Libido decreased [Unknown]
  - Infertility female [Unknown]

NARRATIVE: CASE EVENT DATE: 20200630
